FAERS Safety Report 5902665-1 (Version None)
Quarter: 2008Q3

REPORT INFORMATION
  Report Type: 
  Country: None (occurrence: None)
  Receive Date: 20080929
  Receipt Date: 20080929
  Transmission Date: 20090109
  Serious: No
  Sender: FDA-Public Use
  Company Number: None

PATIENT

DRUGS (1)
  1. CELESTONE SOLUSPAN [Suspect]
     Dosage: 6MG PER ML

REACTIONS (1)
  - MEDICATION ERROR [None]
